FAERS Safety Report 5084254-7 (Version None)
Quarter: 2006Q3

REPORT INFORMATION
  Report Type: 
  Country: None (occurrence: None)
  Receive Date: 20060821
  Receipt Date: 20060523
  Transmission Date: 20061208
  Serious: No
  Sender: FDA-Public Use
  Company Number: US-BRISTOL-MYERS SQUIBB COMPANY-13387592

PATIENT
  Age: 48 Year
  Sex: Female
  Weight: 54 kg

DRUGS (7)
  1. TEQUIN [Suspect]
     Indication: SINUSITIS
     Route: 048
     Dates: start: 20051104, end: 20051110
  2. AMOXICILLIN [Concomitant]
  3. ACTONEL [Concomitant]
  4. ALBUTEROL [Concomitant]
  5. ALLEGRA-D 12 HOUR [Concomitant]
  6. FLONASE [Concomitant]
  7. ROBITUSSIN DM [Concomitant]

REACTIONS (1)
  - LOSS OF CONSCIOUSNESS [None]
